FAERS Safety Report 13271828 (Version 1)
Quarter: 2017Q1

REPORT INFORMATION
  Report Type: Report from Study
  Country: US (occurrence: US)
  Receive Date: 20170227
  Receipt Date: 20170227
  Transmission Date: 20170428
  Serious: Yes (Death, Other)
  Sender: FDA-Public Use
  Company Number: US-BRISTOL-MYERS SQUIBB COMPANY-BMS-2017-002950

PATIENT
  Sex: Male

DRUGS (2)
  1. NIVOLUMAB [Suspect]
     Active Substance: NIVOLUMAB
     Indication: SQUAMOUS CELL CARCINOMA OF HEAD AND NECK
     Dosage: UNK, Q2WK
     Route: 042
     Dates: start: 20170105
  2. BACLOFEN. [Concomitant]
     Active Substance: BACLOFEN
     Indication: PRODUCT USED FOR UNKNOWN INDICATION
     Route: 065

REACTIONS (16)
  - Weight decreased [Unknown]
  - Aphasia [Unknown]
  - Dehydration [Unknown]
  - Myalgia [Unknown]
  - Asthenia [Unknown]
  - Hiccups [Unknown]
  - Cough [Unknown]
  - Dysphagia [Unknown]
  - Dizziness [Unknown]
  - Death [Fatal]
  - Balance disorder [Unknown]
  - Headache [Recovering/Resolving]
  - Ear pain [Recovering/Resolving]
  - Diplopia [Unknown]
  - Oesophageal dilation procedure [Unknown]
  - Swelling [Unknown]
